FAERS Safety Report 9324860 (Version 1)
Quarter: 2013Q2

REPORT INFORMATION
  Report Type: Spontaneous
  Country: US (occurrence: US)
  Receive Date: 20130603
  Receipt Date: 20130603
  Transmission Date: 20140414
  Serious: No
  Sender: FDA-Public Use
  Company Number: US-009507513-1305USA016015

PATIENT
  Sex: Male

DRUGS (2)
  1. CLARITIN [Suspect]
     Indication: NASAL CONGESTION
     Dosage: 10 MG, ONCE
     Route: 048
     Dates: start: 20130509
  2. CLARITIN [Suspect]
     Indication: MEDICAL OBSERVATION

REACTIONS (8)
  - Dyspnoea [Not Recovered/Not Resolved]
  - Increased upper airway secretion [Not Recovered/Not Resolved]
  - Anxiety [Not Recovered/Not Resolved]
  - Feeling jittery [Not Recovered/Not Resolved]
  - Dysgeusia [Not Recovered/Not Resolved]
  - Nausea [Not Recovered/Not Resolved]
  - Somnolence [Not Recovered/Not Resolved]
  - Off label use [Unknown]
